FAERS Safety Report 4431735-2 (Version None)
Quarter: 2004Q3

REPORT INFORMATION
  Report Type: 
  Country: None (occurrence: None)
  Receive Date: 20040818
  Receipt Date: 20040803
  Transmission Date: 20050211
  Serious: Yes (Hospitalization)
  Sender: FDA-Public Use
  Company Number: 200242

PATIENT
  Age: 62 Year
  Sex: Female

DRUGS (7)
  1. AVONEX [Suspect]
     Indication: MULTIPLE SCLEROSIS
     Dosage: 30 MCG QW IM
     Route: 030
     Dates: start: 19971212
  2. AMANTADINE HCL [Concomitant]
  3. BACLOFEN [Concomitant]
  4. DITROPAN [Concomitant]
  5. PREMARIN [Concomitant]
  6. HYDROCHLOROTHIAZIDE [Concomitant]
  7. CELEXA [Concomitant]

REACTIONS (2)
  - FALL [None]
  - MUSCULAR WEAKNESS [None]
